FAERS Safety Report 4817060-6 (Version None)
Quarter: 2005Q4

REPORT INFORMATION
  Report Type: 
  Country: None (occurrence: None)
  Receive Date: 20051101
  Receipt Date: 20051027
  Transmission Date: 20060501
  Serious: Yes (Life-Threatening, Hospitalization)
  Sender: FDA-Public Use
  Company Number: DE-GLAXOSMITHKLINE-D0047839A

PATIENT
  Age: 72 Year
  Sex: Male

DRUGS (3)
  1. LEUKERAN [Suspect]
     Indication: MULTIPLE MYELOMA
     Dosage: 2MG FIVE TIMES PER DAY
     Route: 048
     Dates: start: 20050707, end: 20050721
  2. DOXEPIN HCL [Concomitant]
     Route: 065
  3. DIGITOXIN TAB [Concomitant]
     Route: 065

REACTIONS (3)
  - ANAEMIA [None]
  - CONVULSION [None]
  - ENDOCARDITIS [None]
